FAERS Safety Report 5474442-X (Version None)
Quarter: 2007Q3

REPORT INFORMATION
  Report Type: 
  Country: None (occurrence: None)
  Receive Date: 20070928
  Receipt Date: 20070918
  Transmission Date: 20080115
  Serious: Yes (Other)
  Sender: FDA-Public Use
  Company Number: 100#03#2007-03702

PATIENT
  Age: 48 Year
  Sex: Female

DRUGS (6)
  1. TRAMADOL HCL [Suspect]
     Indication: ANALGESIA
     Dosage: 100MG THREE TIMES A DAY; ORAL
     Route: 048
     Dates: start: 20070816, end: 20070826
  2. ADACAL-D3 (CALCIUM CARBONATE, COLECALCIFEROL) [Concomitant]
  3. AMITRIPTLINE HCL [Concomitant]
  4. CELECOXIB (CELECOXIB) (CELECOXIB) [Concomitant]
  5. DULOXETINE (DULOXETINE) [Concomitant]
  6. PREDNISOLONE [Concomitant]

REACTIONS (5)
  - DYSPNOEA [None]
  - LIP SWELLING [None]
  - SWOLLEN TONGUE [None]
  - URTICARIA [None]
  - WHEEZING [None]
